FAERS Safety Report 11660502 (Version 2)
Quarter: 2015Q4

REPORT INFORMATION
  Report Type: Spontaneous
  Country: JP (occurrence: JP)
  Receive Date: 20151026
  Receipt Date: 20151028
  Transmission Date: 20160304
  Serious: Yes (Hospitalization)
  Sender: FDA-Public Use
  Company Number: JP-JNJFOC-20151015158

PATIENT
  Sex: Male

DRUGS (2)
  1. RISPERIDAL [Suspect]
     Active Substance: RISPERIDONE
     Indication: SCHIZOPHRENIA
     Dosage: 3 MG IN MORNING, 2 MG IN DAYTIME, 3 MG IN THE EVENING
     Route: 048
  2. MEQUITAZINE [Suspect]
     Active Substance: MEQUITAZINE
     Indication: ATOPY
     Route: 065
     Dates: start: 20151019

REACTIONS (10)
  - Eye movement disorder [Unknown]
  - Dizziness postural [Unknown]
  - Cardiac failure [Recovered/Resolved]
  - Dysarthria [Unknown]
  - Disturbance in attention [Unknown]
  - Thirst [Unknown]
  - Atopy [Unknown]
  - Dizziness [Unknown]
  - Tremor [Unknown]
  - Somnolence [Unknown]
